FAERS Safety Report 6930764-4 (Version None)
Quarter: 2010Q3

REPORT INFORMATION
  Report Type: 
  Country: None (occurrence: None)
  Receive Date: 20100818
  Receipt Date: 20100818
  Transmission Date: 20110219
  Serious: No
  Sender: FDA-Public Use
  Company Number: None

PATIENT
  Sex: Female
  Weight: 86.1834 kg

DRUGS (2)
  1. FLUOXETINE [Suspect]
     Indication: DEPRESSION
     Dosage: ONE CAPSULE DAILY PO
     Route: 048
     Dates: start: 20100716, end: 20100716
  2. FLUOXETINE [Suspect]
     Indication: DEPRESSION
     Dosage: ONE CAPSULE DAILY PO
     Route: 048
     Dates: start: 20100815, end: 20100815

REACTIONS (3)
  - NAUSEA [None]
  - PRODUCT SUBSTITUTION ISSUE [None]
  - VOMITING [None]
